FAERS Safety Report 7323526-X (Version None)
Quarter: 2011Q1

REPORT INFORMATION
  Report Type: 
  Country: None (occurrence: None)
  Receive Date: 20110301
  Receipt Date: 20110221
  Transmission Date: 20110831
  Serious: Yes (Hospitalization)
  Sender: FDA-Public Use
  Company Number: CA-KINGPHARMUSA00001-K201100196

PATIENT
  Age: 3 Year

DRUGS (3)
  1. SEPTRA [Suspect]
     Indication: ANTIBIOTIC PROPHYLAXIS
     Dosage: UNK, TIW
     Route: 048
  2. PENICILLIN V [Suspect]
     Indication: ANTIBIOTIC PROPHYLAXIS
     Dosage: UNK
  3. GANCICLOVIR [Suspect]
     Indication: CYTOMEGALOVIRUS INFECTION
     Dosage: UNK

REACTIONS (5)
  - RASH MACULO-PAPULAR [None]
  - ABSCESS BACTERIAL [None]
  - BLISTER [None]
  - ERYTHEMA MULTIFORME [None]
  - LINEAR IGA DISEASE [None]
